FAERS Safety Report 8557388-X (Version None)
Quarter: 2012Q3

REPORT INFORMATION
  Report Type: 
  Country: None (occurrence: None)
  Receive Date: 20120801
  Receipt Date: 20120608
  Transmission Date: 20120928
  Serious: No
  Sender: FDA-Public Use
  Company Number: US-COVIDIEN/TYCO HEALTHCARE/MALLINCKRODT-T201202533

PATIENT
  Sex: Female

DRUGS (6)
  1. FENTANYL-100 [Suspect]
     Indication: PAIN
     Dosage: 100 MCG/HR Q 48 HR
     Route: 062
     Dates: start: 20110801
  2. FENTANYL CITRATE [Suspect]
     Indication: PAIN
     Dosage: UP TO THREE TIMES A DAY
     Route: 048
     Dates: start: 20110801
  3. CYMBALTA [Concomitant]
     Indication: DEPRESSION
     Dosage: UNK
  4. FENTANYL-100 [Suspect]
     Dosage: 50 MCG/HR Q 48 HR
     Route: 062
     Dates: start: 20110801
  5. TRILEPTAL [Concomitant]
     Indication: CONVULSION
     Dosage: UNK
  6. DEPAKOTE [Concomitant]
     Indication: CONVULSION
     Dosage: UNK

REACTIONS (1)
  - DRUG SCREEN NEGATIVE [None]
